FAERS Safety Report 4841341-3 (Version None)
Quarter: 2005Q4

REPORT INFORMATION
  Report Type: 
  Country: None (occurrence: None)
  Receive Date: 20051130
  Receipt Date: 20051122
  Transmission Date: 20060501
  Serious: Yes (Hospitalization)
  Sender: FDA-Public Use
  Company Number: FR-GLAXOSMITHKLINE-B0401981A

PATIENT
  Age: 43 Year
  Sex: Female

DRUGS (7)
  1. WELLVONE [Suspect]
     Dosage: 15ML PER DAY
     Route: 048
     Dates: start: 20050602
  2. FUNGIZONE [Suspect]
     Indication: HISTOPLASMOSIS DISSEMINATED
     Route: 042
     Dates: start: 20050515, end: 20050602
  3. SMECTA [Suspect]
     Dosage: 3UNIT PER DAY
     Route: 048
     Dates: start: 20050608
  4. FOSCAVIR [Suspect]
     Dosage: 3.5G TWICE PER DAY
     Route: 042
     Dates: start: 20050608, end: 20050616
  5. ACETAMINOPHEN [Suspect]
     Dosage: 1G THREE TIMES PER DAY
     Route: 048
     Dates: start: 20050608
  6. NEXIUM [Suspect]
     Dosage: 1UNIT PER DAY
     Route: 048
     Dates: start: 20050608
  7. VFEND [Concomitant]
     Indication: HISTOPLASMOSIS DISSEMINATED
     Route: 065
     Dates: start: 20050602

REACTIONS (5)
  - BLOOD CREATININE INCREASED [None]
  - HAEMATURIA [None]
  - HYPOALBUMINAEMIA [None]
  - PROTEINURIA [None]
  - RENAL TUBULAR DISORDER [None]
